FAERS Safety Report 5993834-3 (Version None)
Quarter: 2008Q4

REPORT INFORMATION
  Report Type: 
  Country: None (occurrence: None)
  Receive Date: 20081212
  Receipt Date: 20080919
  Transmission Date: 20090506
  Serious: No
  Sender: FDA-Public Use
  Company Number: PR-ABBOTT-08P-131-0477565-00

PATIENT
  Sex: Male

DRUGS (10)
  1. HUMIRA [Suspect]
     Indication: PSORIASIS
  2. TECTURNA [Concomitant]
     Indication: DRUG USE FOR UNKNOWN INDICATION
     Route: 048
  3. DIOVAN HCT [Concomitant]
     Indication: CARDIAC DISORDER
     Dosage: 320/25MG
     Route: 048
  4. METOPROLOL TARTRATE [Concomitant]
     Indication: CARDIAC DISORDER
     Route: 048
  5. METOPROLOL TARTRATE [Concomitant]
     Route: 048
  6. DOXAZOSIN MESYLATE [Concomitant]
     Indication: CARDIAC DISORDER
     Route: 048
  7. SERTRALINE [Concomitant]
     Indication: DEPRESSION
     Route: 048
     Dates: start: 20080901
  8. CLOPIDOGREL [Concomitant]
     Indication: CARDIAC DISORDER
     Route: 048
  9. ACETYLSALICYLIC ACID SRT [Concomitant]
     Indication: CARDIAC DISORDER
     Route: 048
  10. TOPICAL CREAM MIX [Concomitant]
     Indication: PSORIASIS
     Route: 061

REACTIONS (4)
  - CELLULITIS [None]
  - DEPRESSION [None]
  - PLATELET COUNT DECREASED [None]
  - PSORIASIS [None]
